FAERS Safety Report 26010946 (Version 1)
Quarter: 2025Q4

REPORT INFORMATION
  Report Type: Spontaneous
  Country: US (occurrence: None)
  Receive Date: 20251106
  Receipt Date: 20251106
  Transmission Date: 20260118
  Serious: Yes (Death)
  Sender: FDA-CTU
  Company Number: None

PATIENT
  Age: 86 Year
  Sex: Female

DRUGS (1)
  1. PROLIA [Suspect]
     Active Substance: DENOSUMAB
     Indication: Osteoporosis
     Dosage: 60 MG  EVERY 6 MONTHS SUBCUTANEOUS?
     Route: 058
     Dates: start: 20250515, end: 20251103

REACTIONS (1)
  - Death [None]

NARRATIVE: CASE EVENT DATE: 20251103
